FAERS Safety Report 6165519-4 (Version None)
Quarter: 2009Q2

REPORT INFORMATION
  Report Type: 
  Country: None (occurrence: None)
  Receive Date: 20090423
  Receipt Date: 20090417
  Transmission Date: 20091009
  Serious: Yes (Hospitalization, Other)
  Sender: FDA-Public Use
  Company Number: US-ASTRAZENECA-2008UW26508

PATIENT
  Age: 16073 Day
  Sex: Female
  Weight: 121.1 kg

DRUGS (14)
  1. SEROQUEL [Suspect]
     Indication: BIPOLAR DISORDER
     Dosage: 100 MG TO 200 MG
     Route: 048
     Dates: start: 20070101
  2. ABILIFY [Concomitant]
     Dosage: 25 TO 30 MG
     Dates: start: 20051001, end: 20060401
  3. GEODON [Concomitant]
  4. RISPERDAL [Concomitant]
  5. SOLIAN [Concomitant]
  6. STELAZINE [Concomitant]
  7. THORAZINE [Concomitant]
  8. TRILAFON [Concomitant]
  9. ZYPREXA [Concomitant]
  10. CYMBALTA [Concomitant]
     Dates: start: 20060301, end: 20060401
  11. LAMICTAL [Concomitant]
     Dates: start: 20070301
  12. ALPRAZOLAM [Concomitant]
     Dates: start: 20060101
  13. CLONAZEPAM [Concomitant]
     Dosage: 1 TO 2 MG
     Dates: start: 20060301, end: 20080601
  14. METHADONE HCL [Concomitant]
     Indication: PAIN

REACTIONS (10)
  - ABDOMINAL PAIN [None]
  - CATHETERISATION CARDIAC [None]
  - CHEST PAIN [None]
  - DIABETIC KETOACIDOSIS [None]
  - DYSPNOEA [None]
  - GASTRITIS [None]
  - LIVER DISORDER [None]
  - PANCREATITIS [None]
  - RENAL DISORDER [None]
  - TYPE 2 DIABETES MELLITUS [None]
